FAERS Safety Report 7355463-9 (Version None)
Quarter: 2011Q1

REPORT INFORMATION
  Report Type: 
  Country: None (occurrence: None)
  Receive Date: 20110316
  Receipt Date: 20110307
  Transmission Date: 20110831
  Serious: Yes (Hospitalization)
  Sender: FDA-Public Use
  Company Number: GB-ELI_LILLY_AND_COMPANY-GB201103002858

PATIENT
  Age: 71 Year
  Sex: Male

DRUGS (6)
  1. GEMCITABINE HYDROCHLORIDE [Suspect]
     Indication: BLADDER TRANSITIONAL CELL CARCINOMA STAGE 0
     Dosage: UNK, UNK
     Route: 042
     Dates: start: 20100929
  2. CISPLATIN [Suspect]
     Indication: BLADDER TRANSITIONAL CELL CARCINOMA STAGE 0
     Dosage: UNK, UNK
     Route: 042
     Dates: start: 20100929
  3. TAMSULOSIN HCL [Concomitant]
     Dosage: 400 UG, DAILY (1/D)
     Route: 048
  4. ENOXAPARIN [Concomitant]
     Dosage: 40 MG, DAILY (1/D)
     Route: 058
     Dates: start: 20101203
  5. SUNITINIB MALATE [Suspect]
     Indication: BLADDER TRANSITIONAL CELL CARCINOMA STAGE 0
     Dosage: 25 MG, DAILY (1/D)
     Route: 048
     Dates: start: 20100929
  6. OMEPRAZOLE [Concomitant]
     Dosage: 20 MG, DAILY (1/D)

REACTIONS (1)
  - NEUTROPENIC SEPSIS [None]
